FAERS Safety Report 11826720 (Version 2)
Quarter: 2016Q1

REPORT INFORMATION
  Report Type: Report from Study
  Country: CO (occurrence: CO)
  Receive Date: 20151211
  Receipt Date: 20160301
  Transmission Date: 20160525
  Serious: Yes (Hospitalization)
  Sender: FDA-Public Use
  Company Number: CO-JNJFOC-20151205904

PATIENT
  Age: 30 Year
  Sex: Male
  Weight: 65 kg

DRUGS (1)
  1. RISPERDAL CONSTA [Suspect]
     Active Substance: RISPERIDONE
     Indication: SCHIZOPHRENIA
     Route: 030
     Dates: start: 20120117

REACTIONS (9)
  - Abnormal behaviour [Not Recovered/Not Resolved]
  - Incoherent [Not Recovered/Not Resolved]
  - Soliloquy [Not Recovered/Not Resolved]
  - Substance abuse [Not Recovered/Not Resolved]
  - Illogical thinking [Not Recovered/Not Resolved]
  - Poor personal hygiene [Not Recovered/Not Resolved]
  - Delirium [Not Recovered/Not Resolved]
  - Mental disorder [Not Recovered/Not Resolved]
  - Irregular sleep phase [Not Recovered/Not Resolved]

NARRATIVE: CASE EVENT DATE: 20151201
